FAERS Safety Report 9024243 (Version 1)
Quarter: 2013Q1

REPORT INFORMATION
  Report Type: Spontaneous
  Country: KP (occurrence: KP)
  Receive Date: 20130121
  Receipt Date: 20130121
  Transmission Date: 20140127
  Serious: Yes (Other)
  Sender: FDA-Public Use
  Company Number: KP-JNJFOC-20130106669

PATIENT
  Age: 72 None
  Sex: Male

DRUGS (7)
  1. FINIBAX [Suspect]
     Indication: ABDOMINAL INFECTION
     Route: 042
     Dates: start: 20130103
  2. VANCOCIN [Suspect]
     Indication: PRODUCT USED FOR UNKNOWN INDICATION
     Route: 065
     Dates: start: 20130103
  3. FOY [Concomitant]
     Route: 065
     Dates: start: 20130105
  4. TAMIPOOL [Concomitant]
     Route: 065
     Dates: start: 20130103
  5. UNKNOWN MEDICATION [Concomitant]
     Route: 065
     Dates: start: 20130106
  6. MUCOSTEN [Concomitant]
     Dosage: 10 %
     Route: 065
     Dates: start: 20130103
  7. ATROVENT UDV [Concomitant]
     Dosage: 500 UG/2 ML
     Route: 065
     Dates: start: 20130106

REACTIONS (1)
  - Blood creatinine increased [Unknown]
